FAERS Safety Report 22183003 (Version 3)
Quarter: 2023Q4

REPORT INFORMATION
  Report Type: Spontaneous
  Country: JP (occurrence: JP)
  Receive Date: 20230406
  Receipt Date: 20231106
  Transmission Date: 20240110
  Serious: Yes (Death, Hospitalization, Other)
  Sender: FDA-Public Use
  Company Number: JP-MSD-M2023-05366

PATIENT
  Age: 8 Decade
  Sex: Male

DRUGS (5)
  1. KEYTRUDA [Suspect]
     Active Substance: PEMBROLIZUMAB
     Indication: Oesophageal carcinoma
     Dosage: 200 MILLIGRAM, Q3W
     Route: 041
     Dates: start: 20221227, end: 202302
  2. CISPLATIN [Concomitant]
     Active Substance: CISPLATIN
     Indication: Oesophageal carcinoma
     Dosage: 80 MILLIGRAM/SQ. METER
     Route: 065
     Dates: start: 20221227, end: 20221227
  3. CISPLATIN [Concomitant]
     Active Substance: CISPLATIN
     Dosage: UNK, REDUCED BY 1 STEP
     Route: 065
     Dates: start: 2023, end: 202302
  4. FLUOROURACIL [Concomitant]
     Active Substance: FLUOROURACIL
     Indication: Oesophageal carcinoma
     Dosage: 4000 MILLIGRAM/SQ. METER
     Route: 065
     Dates: start: 20221227, end: 20221227
  5. FLUOROURACIL [Concomitant]
     Active Substance: FLUOROURACIL
     Dosage: UNK, REDUCED BY 1 STEP
     Route: 065
     Dates: start: 2023, end: 202302

REACTIONS (4)
  - Malignant neoplasm progression [Fatal]
  - Oesophageal disorder [Not Recovered/Not Resolved]
  - Neutropenia [Recovered/Resolved]
  - Drug ineffective [Unknown]

NARRATIVE: CASE EVENT DATE: 20230101
